FAERS Safety Report 20953179 (Version 1)
Quarter: 2022Q2

REPORT INFORMATION
  Report Type: Report from Study
  Country: KR (occurrence: KR)
  Receive Date: 20220613
  Receipt Date: 20220613
  Transmission Date: 20220720
  Serious: Yes (Death, Hospitalization, Other)
  Sender: FDA-Public Use
  Company Number: KR-NOVARTISPH-NVSC2022KR075307

PATIENT
  Age: 69 Year
  Sex: Female

DRUGS (4)
  1. TRAMETINIB [Suspect]
     Active Substance: TRAMETINIB
     Indication: Anaplastic thyroid cancer
     Dosage: 150 MG, BID
     Route: 048
     Dates: start: 20210917, end: 20220316
  2. DABRAFENIB [Suspect]
     Active Substance: DABRAFENIB
     Indication: Anaplastic thyroid cancer
     Dosage: 2 MG, QD
     Route: 048
     Dates: start: 20210917, end: 20220316
  3. SYNTHROID [Concomitant]
     Active Substance: LEVOTHYROXINE SODIUM
     Indication: Thyroidectomy
     Dosage: UNK
     Route: 065
     Dates: start: 20211201
  4. THEOBROMINE [Concomitant]
     Active Substance: THEOBROMINE
     Indication: Cough
     Dosage: UNK
     Route: 065
     Dates: start: 20210903

REACTIONS (4)
  - Death [Fatal]
  - Spinal cord compression [Recovered/Resolved with Sequelae]
  - Anaplastic thyroid cancer [Not Recovered/Not Resolved]
  - Malignant neoplasm progression [Not Recovered/Not Resolved]

NARRATIVE: CASE EVENT DATE: 20211206
